FAERS Safety Report 7474824-0 (Version None)
Quarter: 2011Q2

REPORT INFORMATION
  Report Type: 
  Country: None (occurrence: None)
  Receive Date: 20110512
  Receipt Date: 20110331
  Transmission Date: 20111010
  Serious: Yes (Hospitalization, Other)
  Sender: FDA-Public Use
  Company Number: US-BAYER-201029580NA

PATIENT
  Age: 28 Year
  Sex: Female
  Weight: 104.31 kg

DRUGS (4)
  1. DIPHENHYDRAMINE [Concomitant]
  2. TOPAMAX [Concomitant]
  3. YASMIN [Suspect]
     Dosage: UNK UNK, UNK
     Route: 048
     Dates: start: 20050101, end: 20090101
  4. DROSPIRENONE AND ETHINYL ESTRADIOL [Suspect]
     Dosage: UNK
     Dates: start: 20050101, end: 20090101

REACTIONS (4)
  - EMOTIONAL DISTRESS [None]
  - CHOLELITHIASIS [None]
  - CHOLECYSTITIS [None]
  - GALLBLADDER DISORDER [None]
